FAERS Safety Report 5203974-4 (Version None)
Quarter: 2007Q1

REPORT INFORMATION
  Report Type: 
  Country: None (occurrence: None)
  Receive Date: 20070105
  Receipt Date: 20061222
  Transmission Date: 20070707
  Serious: Yes (Death, Hospitalization)
  Sender: FDA-Public Use
  Company Number: 2006-03028

PATIENT
  Age: 69 Year
  Sex: Male
  Weight: 76 kg

DRUGS (10)
  1. VELCADE [Suspect]
     Indication: MULTIPLE MYELOMA
     Dosage: INTRAVENOUS
     Route: 042
     Dates: start: 20061031
  2. DEXAMETHASONE [Suspect]
     Indication: MULTIPLE MYELOMA
     Dates: start: 20061031
  3. ENOXAPARIN SODIUM [Concomitant]
  4. ALODORM (NITRAZEPAM) [Concomitant]
  5. LOSEC (OMEPRAZOLE) [Concomitant]
  6. MIRTAZAPINE [Concomitant]
  7. PERIACTIN [Concomitant]
  8. ACETAMINOPHEN [Concomitant]
  9. TRAMADOL HCL [Concomitant]
  10. MS CONTIN [Concomitant]

REACTIONS (1)
  - PNEUMONIA [None]
